FAERS Safety Report 21194939 (Version 1)
Quarter: 2022Q3

REPORT INFORMATION
  Report Type: Spontaneous
  Country: US (occurrence: US)
  Receive Date: 20220810
  Receipt Date: 20220810
  Transmission Date: 20221026
  Serious: No
  Sender: FDA-Public Use
  Company Number: US-NOVARTISTESTPH-NVSC2022US180085

PATIENT
  Sex: Female

DRUGS (1)
  1. HYDROCORTISONE [Suspect]
     Active Substance: HYDROCORTISONE
     Indication: Product used for unknown indication
     Dosage: 28.35 G, BID
     Route: 065

REACTIONS (5)
  - Lip pain [Unknown]
  - Lip swelling [Unknown]
  - Lip dry [Unknown]
  - Eating disorder [Unknown]
  - Condition aggravated [Unknown]
